FAERS Safety Report 12145022 (Version 1)
Quarter: 2016Q1

REPORT INFORMATION
  Report Type: Report from Study
  Country: US (occurrence: US)
  Receive Date: 20160304
  Receipt Date: 20160304
  Transmission Date: 20160526
  Serious: Yes (Hospitalization, Disabling)
  Sender: FDA-Public Use
  Company Number: PHHO2015US016849

PATIENT
  Age: 69 Year
  Sex: Female
  Weight: 61.4 kg

DRUGS (4)
  1. DABRAFENIB [Suspect]
     Active Substance: DABRAFENIB
     Indication: COLON CANCER
     Dosage: 150 MG, QD
     Route: 048
     Dates: start: 20150313, end: 20150326
  2. DABRAFENIB [Suspect]
     Active Substance: DABRAFENIB
     Dosage: 150 MG, BID
     Route: 048
     Dates: start: 20150327, end: 20150423
  3. RABEPRAZOLE [Suspect]
     Active Substance: RABEPRAZOLE
     Indication: COLON CANCER
     Dosage: UNK
     Route: 048
     Dates: start: 20150415, end: 20150423
  4. RIFAMPIN. [Suspect]
     Active Substance: RIFAMPIN
     Indication: COLON CANCER
     Dosage: UNK
     Route: 048
     Dates: start: 20150411, end: 20150414

REACTIONS (1)
  - Cognitive disorder [Not Recovered/Not Resolved]

NARRATIVE: CASE EVENT DATE: 20150421
